FAERS Safety Report 5286360-0 (Version None)
Quarter: 2007Q1

REPORT INFORMATION
  Report Type: 
  Country: None (occurrence: None)
  Receive Date: 20070116
  Receipt Date: 20061021
  Transmission Date: 20070707
  Serious: No
  Sender: FDA-Public Use
  Company Number: 2006SP003778

PATIENT
  Age: 24 Year
  Sex: Male
  Weight: 70.3075 kg

DRUGS (3)
  1. LUNESTA [Suspect]
     Indication: INSOMNIA
     Dosage: SEE IMAGE
     Route: 048
     Dates: start: 20060701, end: 20060901
  2. LUNESTA [Suspect]
     Indication: INSOMNIA
     Dosage: SEE IMAGE
     Route: 048
     Dates: start: 20060901
  3. SEROQUEL [Concomitant]

REACTIONS (2)
  - DRUG EFFECT DECREASED [None]
  - DYSGEUSIA [None]
